FAERS Safety Report 18693244 (Version 4)
Quarter: 2021Q2

REPORT INFORMATION
  Report Type: Spontaneous
  Country: ES (occurrence: ES)
  Receive Date: 20210104
  Receipt Date: 20210609
  Transmission Date: 20210717
  Serious: Yes (Other)
  Sender: FDA-Public Use
  Company Number: ES-CELLTRION INC.-2020ES034772

PATIENT

DRUGS (2)
  1. INFLIXIMAB (UNKNOWN) [Suspect]
     Active Substance: INFLIXIMAB
     Indication: OSTEOMYELITIS CHRONIC
     Dosage: 5 MG/KG AT WEEKS 0, 2, 4 AND EVERY 8 WEEKS AS MAINTENANCE
     Route: 065
  2. METHOTREXATE. [Concomitant]
     Active Substance: METHOTREXATE
     Indication: DRUG SPECIFIC ANTIBODY PRESENT
     Dosage: 10 MG/M2, QW
     Route: 048

REACTIONS (4)
  - Drug effective for unapproved indication [Unknown]
  - Cutaneous leishmaniasis [Recovered/Resolved]
  - Off label use [Unknown]
  - Product use in unapproved indication [Unknown]
